FAERS Safety Report 25701448 (Version 1)
Quarter: 2025Q3

REPORT INFORMATION
  Report Type: Spontaneous
  Country: US (occurrence: None)
  Receive Date: 20250819
  Receipt Date: 20250819
  Transmission Date: 20251020
  Serious: No
  Sender: FDA-CTU
  Company Number: None

PATIENT
  Age: 59 Year
  Sex: Female
  Weight: 83.5 kg

DRUGS (1)
  1. REZDIFFRA [Suspect]
     Active Substance: RESMETIROM
     Indication: Metabolic dysfunction-associated steatohepatitis
     Dosage: FREQUENCY : DAILY;?
     Route: 047
     Dates: start: 20250101, end: 20250718

REACTIONS (4)
  - Pruritus [None]
  - Pruritus [None]
  - Ulcer [None]
  - Impaired healing [None]

NARRATIVE: CASE EVENT DATE: 20250303
